FAERS Safety Report 10312702 (Version 1)
Quarter: 2014Q3

REPORT INFORMATION
  Report Type: Report from Study
  Country: EC (occurrence: EC)
  Receive Date: 20140718
  Receipt Date: 20140718
  Transmission Date: 20150326
  Serious: Yes (Other)
  Sender: FDA-Public Use
  Company Number: PHHY2014EC087858

PATIENT
  Sex: Female

DRUGS (1)
  1. ACLASTA [Suspect]
     Active Substance: ZOLEDRONIC ACID
     Dosage: UNK UKN, ANNUAL
     Route: 042
     Dates: start: 20140530

REACTIONS (4)
  - Headache [Unknown]
  - Diabetes mellitus [Unknown]
  - Arrhythmia [Unknown]
  - Metabolic disorder [Unknown]
